FAERS Safety Report 9783243 (Version 1)
Quarter: 2013Q4

REPORT INFORMATION
  Report Type: Spontaneous
  Country: JP (occurrence: JP)
  Receive Date: 20131226
  Receipt Date: 20131226
  Transmission Date: 20140711
  Serious: Yes (Other)
  Sender: FDA-Public Use
  Company Number: JP-PFIZER INC-2013369222

PATIENT
  Age: 53 Year
  Sex: Male

DRUGS (2)
  1. LYRICA [Suspect]
     Dosage: 75 MG, 2X/DAY
     Route: 048
     Dates: start: 201304
  2. RIVOTRIL [Concomitant]
     Route: 048

REACTIONS (7)
  - Dizziness [Recovered/Resolved]
  - Dysstasia [Unknown]
  - Hypoaesthesia [Unknown]
  - Muscle contracture [Unknown]
  - Weight increased [Unknown]
  - Pain [Unknown]
  - Somnolence [Unknown]
